FAERS Safety Report 22281978 (Version 5)
Quarter: 2024Q4

REPORT INFORMATION
  Report Type: Spontaneous
  Country: JP (occurrence: JP)
  Receive Date: 20230504
  Receipt Date: 20241223
  Transmission Date: 20250114
  Serious: Yes (Hospitalization)
  Sender: JOHNSON AND JOHNSON
  Company Number: JP-MTPC-MTPC2023-0011432

PATIENT
  Age: 66 Year
  Sex: Female

DRUGS (1)
  1. CANAGLIFLOZIN [Suspect]
     Active Substance: CANAGLIFLOZIN
     Indication: Rathke^s cleft cyst
     Dosage: 100 MILLIGRAM
     Route: 048

REACTIONS (2)
  - Tubulointerstitial nephritis [Unknown]
  - Off label use [Unknown]
